FAERS Safety Report 20723848 (Version 8)
Quarter: 2022Q3

REPORT INFORMATION
  Report Type: Report from Study
  Country: US (occurrence: US)
  Receive Date: 20220419
  Receipt Date: 20220909
  Transmission Date: 20221026
  Serious: No
  Sender: FDA-Public Use
  Company Number: US-NOVARTISTESTPH-NVSC2022US090051

PATIENT
  Sex: Male

DRUGS (3)
  1. ENTRESTO [Suspect]
     Active Substance: SACUBITRIL\VALSARTAN
     Indication: Product used for unknown indication
     Dosage: UNK UNK, UNKNOWN
     Route: 065
  2. ENTRESTO [Suspect]
     Active Substance: SACUBITRIL\VALSARTAN
     Dosage: 1 DOSAGE FORM, (49/51 MG) BID
     Route: 065
  3. ENTRESTO [Suspect]
     Active Substance: SACUBITRIL\VALSARTAN
     Dosage: 49 MG/51 MG, BID
     Route: 065

REACTIONS (7)
  - COVID-19 [Recovering/Resolving]
  - Cough [Unknown]
  - Dyspnoea exertional [Unknown]
  - Weight decreased [Unknown]
  - Pain in extremity [Unknown]
  - Peripheral swelling [Unknown]
  - Localised infection [Unknown]
